FAERS Safety Report 12211425 (Version 2)
Quarter: 2016Q2

REPORT INFORMATION
  Report Type: Spontaneous
  Country: CH (occurrence: CH)
  Receive Date: 20160325
  Receipt Date: 20160516
  Transmission Date: 20160815
  Serious: Yes (Hospitalization)
  Sender: FDA-Public Use
  Company Number: CH-TEVA-645089ISR

PATIENT
  Age: 82 Year
  Sex: Male

DRUGS (16)
  1. NOPIL FORTE TABLETTEN [Suspect]
     Active Substance: SULFAMETHOXAZOLE\TRIMETHOPRIM
     Indication: INFECTION PROPHYLAXIS
     Dosage: STRENGTH: 800MG/160MG
     Route: 048
     Dates: start: 20151230, end: 20160205
  2. AMLODIPIN [Suspect]
     Active Substance: AMLODIPINE BESYLATE
     Dosage: 5 MILLIGRAM DAILY; STRENGTH: UNSPECIFIED, 0-0-1-0, NO FURTHER INFORMATION
     Route: 065
     Dates: start: 201601, end: 20160210
  3. STILNOX [Suspect]
     Active Substance: ZOLPIDEM TARTRATE
     Dosage: 10 MILLIGRAM DAILY; STRENGTH: UNSPECIFIED, 0-0-0-1
     Route: 065
     Dates: start: 201512, end: 20160203
  4. PREDNISON [Concomitant]
     Active Substance: PREDNISONE
     Dosage: 20 MILLIGRAM DAILY; STRENGTH: UNSPECIFIED
     Route: 040
  5. PREDNISON [Concomitant]
     Active Substance: PREDNISONE
     Dosage: 40 MILLIGRAM DAILY; STRENGTH: UNSPECIFIED
     Route: 040
     Dates: start: 20151201
  6. TRIATEC 5 MG KAPSELN [Suspect]
     Active Substance: RAMIPRIL
     Dosage: 10 MILLIGRAM DAILY; STRENGTH: 5MG, 2-0-0-0
     Route: 065
     Dates: start: 20151224, end: 20160210
  7. PANTOZOL [Suspect]
     Active Substance: PANTOPRAZOLE SODIUM
     Dosage: 40 MILLIGRAM DAILY; STRENGTH: 40MG, REPORTED DOSE 20-40MG, 1-0-0-0
     Route: 065
     Dates: start: 20151221, end: 20160203
  8. RANIMED [Suspect]
     Active Substance: RANITIDINE HYDROCHLORIDE
     Dosage: 150 MILLIGRAM DAILY; STRENGTH: UNSPECIFIED, 1-0-0-0, NO FURTHER INFORMATION
     Route: 065
     Dates: start: 201601, end: 20160206
  9. XYZAL [Suspect]
     Active Substance: LEVOCETIRIZINE DIHYDROCHLORIDE
     Dosage: 5 MILLIGRAM DAILY; STRENGTH: UNSPECIFIED, 0-0-1-0
     Route: 065
     Dates: start: 20151221, end: 20160203
  10. PREDNISON [Concomitant]
     Active Substance: PREDNISONE
     Dosage: 70 MILLIGRAM DAILY; STRENGTH: UNSPECIFIED
     Route: 040
     Dates: start: 20151201, end: 20160216
  11. VITAMIN D3 WILD [Concomitant]
     Dosage: 4 GTT DAILY; STRENGTH: UNSPECIFIED, GTT DROPS
     Route: 065
     Dates: start: 201601, end: 20160205
  12. PREDNISON [Concomitant]
     Active Substance: PREDNISONE
     Dosage: 25 MILLIGRAM DAILY; STRENGTH: UNSPECIFIED
     Route: 040
  13. CALCIMAGON D3 [Concomitant]
     Active Substance: CALCIUM\CHOLECALCIFEROL
     Dosage: 500 MILLIGRAM DAILY; STRENGTH: UNSPECIFIED
     Route: 065
     Dates: start: 20151223, end: 20160205
  14. AUGMENTIN [Suspect]
     Active Substance: AMOXICILLIN\CLAVULANATE POTASSIUM
     Indication: LEUKOCYTURIA
     Dosage: 2 GRAM DAILY; STRENGTH: 125MG/875MG, 1-0-1-0
     Route: 065
     Dates: start: 20151230, end: 20160106
  15. ALDACTONE [Suspect]
     Active Substance: SPIRONOLACTONE
     Dosage: STRENGTH: UNSPECIFIED, NO FURTHER INFORMATION
     Route: 065
     Dates: start: 201601, end: 20160203
  16. LORAZEPAM. [Suspect]
     Active Substance: LORAZEPAM
     Dosage: 35 MILLIGRAM DAILY; STRENGTH: UNSPECIFIED, NO FURTHER INFORMATION. DAILY DOSE: 35 MG
     Route: 065
     Dates: start: 201601, end: 20160203

REACTIONS (1)
  - Drug-induced liver injury [Recovered/Resolved]

NARRATIVE: CASE EVENT DATE: 201602
